FAERS Safety Report 13239736 (Version 2)
Quarter: 2017Q1

REPORT INFORMATION
  Report Type: Spontaneous
  Country: ES (occurrence: ES)
  Receive Date: 20170216
  Receipt Date: 20170301
  Transmission Date: 20170428
  Serious: Yes (Other)
  Sender: FDA-Public Use
  Company Number: ES-JNJFOC-20170207210

PATIENT
  Age: 73 Year
  Sex: Female

DRUGS (15)
  1. ACTIQ [Concomitant]
     Active Substance: FENTANYL CITRATE
  2. ACYCLOVIR. [Concomitant]
     Active Substance: ACYCLOVIR
  3. VITAMIN D [Concomitant]
     Active Substance: CHOLECALCIFEROL
  4. DUROGESIC [Concomitant]
     Active Substance: FENTANYL
  5. GABAPENTIN. [Concomitant]
     Active Substance: GABAPENTIN
  6. CALCIUM [Concomitant]
     Active Substance: CALCIUM
  7. SEPTRIN [Concomitant]
     Active Substance: SULFAMETHOXAZOLE\TRIMETHOPRIM
  8. HIDROFEROL [Concomitant]
     Active Substance: CALCIFEDIOL
  9. LORAZEPAM. [Concomitant]
     Active Substance: LORAZEPAM
     Indication: SLEEP DISORDER
  10. OMEPRAZOLE. [Concomitant]
     Active Substance: OMEPRAZOLE
  11. ADIRO [Concomitant]
     Active Substance: ASPIRIN
  12. TRAMADOL. [Concomitant]
     Active Substance: TRAMADOL
  13. ZOLPIDEM [Concomitant]
     Active Substance: ZOLPIDEM\ZOLPIDEM TARTRATE
  14. DARZALEX [Suspect]
     Active Substance: DARATUMUMAB
     Indication: PLASMA CELL MYELOMA
     Route: 065
  15. URSOBILANE [Concomitant]

REACTIONS (1)
  - Rheumatoid arthritis [Recovered/Resolved]
